FAERS Safety Report 7647543-5 (Version None)
Quarter: 2011Q3

REPORT INFORMATION
  Report Type: 
  Country: None (occurrence: None)
  Receive Date: 20110801
  Receipt Date: 20110721
  Transmission Date: 20111222
  Serious: Yes (Other)
  Sender: FDA-Public Use
  Company Number: DK-GLAXOSMITHKLINE-B0735645A

PATIENT
  Sex: Male
  Weight: 59 kg

DRUGS (6)
  1. AMOXICILLIN [Suspect]
     Indication: INFECTION
     Dosage: 750MG TWICE PER DAY
     Route: 048
     Dates: start: 20110414
  2. CIPROFLAXACIN [Suspect]
     Indication: INFECTION
     Dosage: 500MG TWICE PER DAY
     Route: 048
     Dates: start: 20110414
  3. LAMICTAL [Suspect]
     Indication: EPILEPSY
     Dosage: 250MG TWICE PER DAY
     Route: 048
     Dates: start: 19930101
  4. PREDNISOLONE [Suspect]
     Indication: LIVER TRANSPLANT REJECTION
     Dosage: 2.5MG PER DAY
     Route: 048
     Dates: start: 19920707
  5. IMURAN [Suspect]
     Indication: LIVER TRANSPLANT REJECTION
     Route: 048
     Dates: start: 19920707
  6. TACROLIMUS [Suspect]
     Indication: LIVER TRANSPLANT REJECTION
     Dosage: 3MG PER DAY
     Route: 048
     Dates: start: 19920707

REACTIONS (4)
  - EPILEPTIC AURA [None]
  - DRUG INTERACTION [None]
  - DIPLOPIA [None]
  - DIZZINESS [None]
